FAERS Safety Report 8828085 (Version 1)
Quarter: 2012Q4

REPORT INFORMATION
  Report Type: 
  Country: CN (occurrence: CN)
  Receive Date: 20121005
  Receipt Date: 20121005
  Transmission Date: 20130627
  Serious: Yes (Hospitalization)
  Sender: FDA-Public Use
  Company Number: CN-JNJFOC-20120912585

PATIENT
  Sex: Male

DRUGS (1)
  1. TYLENOL COLD [Suspect]
     Indication: UPPER RESPIRATORY TRACT INFECTION
     Route: 048
     Dates: start: 20090613, end: 20090613

REACTIONS (3)
  - Chest discomfort [Unknown]
  - Rash [Recovering/Resolving]
  - Pruritus [Unknown]
